FAERS Safety Report 16172485 (Version 1)
Quarter: 2019Q2

REPORT INFORMATION
  Report Type: Spontaneous
  Country: GB (occurrence: GB)
  Receive Date: 20190409
  Receipt Date: 20190409
  Transmission Date: 20190711
  Serious: Yes (Other)
  Sender: FDA-Public Use
  Company Number: GB-AUROBINDO-AUR-APL-2019-018391

PATIENT

DRUGS (3)
  1. BISOPROLOL FILM-COATED TABLETS [Suspect]
     Active Substance: BISOPROLOL
     Indication: CARDIAC DISORDER
     Dosage: 5 MILLIGRAM
     Route: 065
  2. BISOPROLOL FILM-COATED TABLETS [Suspect]
     Active Substance: BISOPROLOL
     Dosage: 10 MILLIGRAM
     Route: 065
  3. BISOPROLOL FILM-COATED TABLETS [Suspect]
     Active Substance: BISOPROLOL
     Dosage: 2.5 MILLIGRAM
     Route: 048

REACTIONS (2)
  - Aphasia [Unknown]
  - Cardiac pacemaker insertion [Unknown]
